FAERS Safety Report 9365854 (Version 2)
Quarter: 2013Q3

REPORT INFORMATION
  Report Type: Report from Study
  Country: BR (occurrence: BR)
  Receive Date: 20130625
  Receipt Date: 20130827
  Transmission Date: 20140515
  Serious: No
  Sender: FDA-Public Use
  Company Number: PHHY2013BR064694

PATIENT
  Sex: Female
  Weight: 80 kg

DRUGS (2)
  1. DIOVAN [Suspect]
     Indication: HYPERTENSION
     Dosage: 1 DF, (160 MG) ONCE PER DAY
     Route: 048
     Dates: start: 201105, end: 201205
  2. HYDROCHLOROTHIAZIDE [Concomitant]
     Indication: FLUID RETENTION
     Dosage: 1 DF(25MG), DAILY
     Route: 048

REACTIONS (2)
  - Pain in extremity [Recovered/Resolved]
  - Local swelling [Recovered/Resolved]
